FAERS Safety Report 9045307 (Version 3)
Quarter: 2013Q2

REPORT INFORMATION
  Report Type: Spontaneous
  Country: FR (occurrence: FR)
  Receive Date: 20130131
  Receipt Date: 20130422
  Transmission Date: 20140414
  Serious: Yes (Hospitalization)
  Sender: FDA-Public Use
  Company Number: FR-PFIZER INC-2013027125

PATIENT
  Age: 68 Year
  Sex: Female

DRUGS (7)
  1. DALACINE [Suspect]
     Dosage: UNK
     Dates: start: 20121101, end: 20121205
  2. TAZOCILLINE [Suspect]
     Dosage: UNK
     Dates: start: 20121030, end: 20121127
  3. CUBICIN [Suspect]
     Dosage: UNK
     Dates: start: 20121030, end: 20121128
  4. CANCIDAS [Suspect]
     Indication: CANDIDA INFECTION
     Dosage: UNK
     Dates: start: 20121109, end: 20121116
  5. AMBISOME [Suspect]
     Indication: CANDIDA INFECTION
     Dosage: UNK
     Dates: start: 20121116, end: 20121129
  6. AMBISOME [Suspect]
     Dosage: UNK
     Dates: end: 20121217
  7. OFLOCET [Concomitant]
     Dosage: UNK
     Dates: start: 20121129

REACTIONS (2)
  - Dermatitis exfoliative [Recovered/Resolved]
  - Febrile bone marrow aplasia [Unknown]
